FAERS Safety Report 4555368-2 (Version None)
Quarter: 2005Q1

REPORT INFORMATION
  Report Type: 
  Country: None (occurrence: None)
  Receive Date: 20050118
  Receipt Date: 20050118
  Transmission Date: 20050727
  Serious: Yes (Hospitalization)
  Sender: FDA-Public Use
  Company Number: None

PATIENT
  Age: 74 Year
  Sex: Female
  Weight: 78.0187 kg

DRUGS (5)
  1. DIOVAN [Suspect]
     Indication: HYPERTENSION
     Dosage: 160 MG DAILY/APPROX 1 YEAR
  2. METFORMIN HCL [Concomitant]
  3. AMLODIPINE [Concomitant]
  4. CEFAZOLIN [Concomitant]
  5. PIOGLITAZONE HCL [Concomitant]

REACTIONS (3)
  - ANGIONEUROTIC OEDEMA [None]
  - POST PROCEDURAL COMPLICATION [None]
  - SWOLLEN TONGUE [None]
